FAERS Safety Report 8268382-0 (Version None)
Quarter: 2012Q1

REPORT INFORMATION
  Report Type: 
  Country: None (occurrence: None)
  Receive Date: 20120327
  Receipt Date: 20091202
  Transmission Date: 20120608
  Serious: Yes (Other)
  Sender: FDA-Public Use
  Company Number: PHEH2009US04140

PATIENT
  Age: 58 Year
  Sex: Female
  Weight: 84.8 kg

DRUGS (2)
  1. XANAX [Concomitant]
  2. GLEEVEC [Suspect]
     Indication: CHRONIC MYELOID LEUKAEMIA
     Dosage: 400 MG, BID, ORAL
     Route: 048
     Dates: start: 20080210, end: 20090427

REACTIONS (2)
  - FLUID RETENTION [None]
  - NEOPLASM MALIGNANT [None]
